FAERS Safety Report 25156330 (Version 2)
Quarter: 2025Q2

REPORT INFORMATION
  Report Type: Spontaneous
  Country: US (occurrence: US)
  Receive Date: 20250403
  Receipt Date: 20250416
  Transmission Date: 20250716
  Serious: No
  Sender: BAUSCH AND LOMB
  Company Number: US-BAUSCHBL-2025BNL005356

PATIENT
  Age: 68 Year
  Sex: Female

DRUGS (1)
  1. ERYTHROMYCIN [Suspect]
     Active Substance: ERYTHROMYCIN
     Indication: Blepharoplasty
     Route: 065
     Dates: start: 20250306, end: 2025

REACTIONS (5)
  - Vision blurred [Not Recovered/Not Resolved]
  - Eye irritation [Recovered/Resolved]
  - Drug hypersensitivity [Recovered/Resolved]
  - Eye swelling [Recovered/Resolved]
  - Ocular hyperaemia [Recovered/Resolved]

NARRATIVE: CASE EVENT DATE: 20250301
